FAERS Safety Report 7751361-7 (Version None)
Quarter: 2011Q3

REPORT INFORMATION
  Report Type: 
  Country: None (occurrence: None)
  Receive Date: 20110914
  Receipt Date: 20110217
  Transmission Date: 20111222
  Serious: Yes (Other)
  Sender: FDA-Public Use
  Company Number: PHHY2011TW15608

PATIENT
  Sex: Male

DRUGS (2)
  1. TASIGNA [Suspect]
     Indication: CHRONIC MYELOID LEUKAEMIA
     Dosage: 800 MG, UNK
     Route: 048
  2. TASIGNA [Suspect]
     Dosage: 600 MG, UNK
     Route: 048
     Dates: start: 20110317

REACTIONS (8)
  - URINARY INCONTINENCE [None]
  - BONE PAIN [None]
  - MUSCULAR WEAKNESS [None]
  - IRRITABILITY [None]
  - SUICIDAL BEHAVIOUR [None]
  - MUSCULOSKELETAL PAIN [None]
  - NECK PAIN [None]
  - ABASIA [None]
